FAERS Safety Report 7111859-1 (Version None)
Quarter: 2010Q4

REPORT INFORMATION
  Report Type: 
  Country: None (occurrence: None)
  Receive Date: 20101119
  Receipt Date: 20101005
  Transmission Date: 20110411
  Serious: Yes (Hospitalization)
  Sender: FDA-Public Use
  Company Number: US-BIOGENIDEC-2010BI033767

PATIENT
  Age: 47 Year
  Sex: Male

DRUGS (4)
  1. TYSABRI [Suspect]
     Indication: MULTIPLE SCLEROSIS
     Route: 042
     Dates: start: 20080905, end: 20100917
  2. FLOMAX [Concomitant]
     Indication: URINARY RETENTION
  3. VITAMIN D [Concomitant]
     Indication: VITAMIN D DECREASED
  4. VIAGRA [Concomitant]
     Indication: ERECTILE DYSFUNCTION

REACTIONS (2)
  - ERECTILE DYSFUNCTION [None]
  - PROGRESSIVE MULTIFOCAL LEUKOENCEPHALOPATHY [None]
